FAERS Safety Report 4676856-4 (Version None)
Quarter: 2005Q2

REPORT INFORMATION
  Report Type: 
  Country: None (occurrence: None)
  Receive Date: 20050527
  Receipt Date: 20050513
  Transmission Date: 20051028
  Serious: Yes (Other)
  Sender: FDA-Public Use
  Company Number: 2005075505

PATIENT
  Age: 58 Year
  Sex: Female

DRUGS (5)
  1. CELEBREX [Suspect]
     Indication: BONE PAIN
     Dosage: 100 MG, ORAL
     Route: 048
  2. BEXTRA [Suspect]
     Indication: ILL-DEFINED DISORDER
     Dosage: 10 MG (10 MG, 1 IN 1 D), ORAL
     Route: 048
  3. CORTISONE ACETATE [Suspect]
     Indication: ILL-DEFINED DISORDER
  4. LORTAB [Concomitant]
  5. TORSEMIDE (TORASEMIDE) [Concomitant]

REACTIONS (18)
  - BRONCHITIS [None]
  - CARDIAC DISORDER [None]
  - COLONIC POLYP [None]
  - DYSPEPSIA [None]
  - DYSPNOEA [None]
  - EPISTAXIS [None]
  - FLATULENCE [None]
  - GASTRIC ULCER HAEMORRHAGE [None]
  - HIATUS HERNIA [None]
  - LOWER LIMB FRACTURE [None]
  - PAIN [None]
  - RIB FRACTURE [None]
  - SINUS DISORDER [None]
  - SINUS HEADACHE [None]
  - SINUSITIS [None]
  - ULCER [None]
  - WEIGHT INCREASED [None]
  - WRIST FRACTURE [None]
